FAERS Safety Report 6048919-2 (Version None)
Quarter: 2009Q1

REPORT INFORMATION
  Report Type: 
  Country: None (occurrence: None)
  Receive Date: 20090123
  Receipt Date: 20090114
  Transmission Date: 20090719
  Serious: Yes (Hospitalization)
  Sender: FDA-Public Use
  Company Number: US-BRISTOL-MYERS SQUIBB COMPANY-14464937

PATIENT
  Age: 52 Year
  Sex: Female

DRUGS (12)
  1. CARBOPLATIN [Suspect]
     Indication: BREAST CANCER
     Dosage: FIRST DOSE ON 17OCT08:(890MG). LAST DOSE PRIOR TO SAE: 890MG
     Route: 042
     Dates: start: 20081230, end: 20081230
  2. ABRAXANE [Suspect]
     Indication: BREAST CANCER
     Dosage: FIRST DOSE ON 17OCT08: 177MG
     Route: 042
     Dates: start: 20081230, end: 20081230
  3. AVASTIN [Suspect]
     Indication: BREAST CANCER
     Dosage: FIRST DOSE ON 29SEP08: 740MG.
     Route: 042
     Dates: start: 20081217, end: 20081217
  4. ATIVAN [Concomitant]
  5. AMBIEN [Concomitant]
  6. NEXIUM [Concomitant]
  7. SYNTHROID [Concomitant]
  8. TYLENOL (CAPLET) [Concomitant]
  9. SCOPOLAMINE [Concomitant]
     Dosage: DOSAGE FORM = PATCH
  10. ZITHROMAX [Concomitant]
     Dates: start: 20081217, end: 20081220
  11. PROCHLORPERAZINE [Concomitant]
  12. ONDANSETRON HYDROCHLORIDE [Concomitant]

REACTIONS (4)
  - BLOOD GLUCOSE INCREASED [None]
  - HAEMOGLOBIN DECREASED [None]
  - INFECTION [None]
  - NAUSEA [None]
